FAERS Safety Report 5945440-4 (Version None)
Quarter: 2008Q4

REPORT INFORMATION
  Report Type: 
  Country: None (occurrence: None)
  Receive Date: 20081107
  Receipt Date: 20081030
  Transmission Date: 20090506
  Serious: Yes (Other)
  Sender: FDA-Public Use
  Company Number: GB-ABBOTT-08P-167-0480638-00

PATIENT
  Sex: Female
  Weight: 71.732 kg

DRUGS (3)
  1. REDUCTIL [Suspect]
     Indication: WEIGHT CONTROL
     Route: 048
     Dates: start: 20080301
  2. REDUCTIL [Suspect]
  3. RIGEVIDON 21+ 7 [Concomitant]
     Indication: CONTRACEPTION
     Route: 048
     Dates: start: 20080701

REACTIONS (2)
  - CONSTIPATION [None]
  - HAEMORRHOIDS [None]
